FAERS Safety Report 6720902-0 (Version None)
Quarter: 2010Q2

REPORT INFORMATION
  Report Type: 
  Country: None (occurrence: None)
  Receive Date: 20100512
  Receipt Date: 20100430
  Transmission Date: 20101027
  Serious: Yes (Hospitalization)
  Sender: FDA-Public Use
  Company Number: GB-JNJFOC-20100201827

PATIENT
  Age: 37 Year
  Sex: Male

DRUGS (5)
  1. PARACETAMOL [Suspect]
     Route: 048
  2. PARACETAMOL [Suspect]
     Indication: DRUG USE FOR UNKNOWN INDICATION
     Route: 048
  3. ALCOHOL (WINE) [Suspect]
     Indication: DRUG USE FOR UNKNOWN INDICATION
  4. ASPIRIN [Concomitant]
  5. BENZODIAZEPINES NOS [Concomitant]

REACTIONS (10)
  - DEHYDRATION [None]
  - DEPRESSED LEVEL OF CONSCIOUSNESS [None]
  - HYPERGLYCAEMIA [None]
  - INTENTIONAL OVERDOSE [None]
  - KETONURIA [None]
  - METABOLIC ACIDOSIS [None]
  - NYSTAGMUS [None]
  - POLYURIA [None]
  - SHOCK [None]
  - SUICIDE ATTEMPT [None]
